FAERS Safety Report 5840460-2 (Version None)
Quarter: 2008Q3

REPORT INFORMATION
  Report Type: 
  Country: None (occurrence: None)
  Receive Date: 20080807
  Receipt Date: 20080807
  Transmission Date: 20090109
  Serious: Yes (Other)
  Sender: FDA-Public Use
  Company Number: None

PATIENT
  Sex: Male
  Weight: 90.7194 kg

DRUGS (2)
  1. SINGULAIR [Suspect]
     Indication: ASTHMA
     Dosage: 10 MG QD PO
     Route: 048
     Dates: start: 20060208, end: 20080807
  2. SINGULAIR [Suspect]
     Indication: HYPERSENSITIVITY
     Dosage: 10 MG QD PO
     Route: 048
     Dates: start: 20060208, end: 20080807

REACTIONS (5)
  - ASTHMA [None]
  - COUGH [None]
  - DRUG EFFECT DECREASED [None]
  - DYSPNOEA [None]
  - PHARMACEUTICAL PRODUCT COMPLAINT [None]
